FAERS Safety Report 16468662 (Version 1)
Quarter: 2019Q3

REPORT INFORMATION
  Report Type: Spontaneous
  Country: US (occurrence: US)
  Receive Date: 20190621
  Receipt Date: 20190621
  Transmission Date: 20191004
  Serious: Yes (Disabling)
  Sender: FDA-Public Use
  Company Number: None

PATIENT
  Age: 27 Year
  Sex: Female
  Weight: 115.2 kg

DRUGS (5)
  1. METFORMIN [Concomitant]
     Active Substance: METFORMIN HYDROCHLORIDE
  2. LUPRON DEPOT [Suspect]
     Active Substance: LEUPROLIDE ACETATE
     Indication: MUSCLE SPASMS
     Dosage: ?          OTHER FREQUENCY:EVERY 3 MONTHS;?
     Route: 058
  3. APRI [Concomitant]
     Active Substance: DESOGESTREL\ETHINYL ESTRADIOL
  4. IBUPROFEN. [Concomitant]
     Active Substance: IBUPROFEN
  5. LUPRON DEPOT [Suspect]
     Active Substance: LEUPROLIDE ACETATE
     Indication: MENORRHAGIA
     Dosage: ?          OTHER FREQUENCY:EVERY 3 MONTHS;?
     Route: 058

REACTIONS (5)
  - Rash [None]
  - Pigmentation disorder [None]
  - Hyperhidrosis [None]
  - Skin odour abnormal [None]
  - Pollakiuria [None]

NARRATIVE: CASE EVENT DATE: 20190619
